FAERS Safety Report 7603532-8 (Version None)
Quarter: 2011Q3

REPORT INFORMATION
  Report Type: 
  Country: None (occurrence: None)
  Receive Date: 20110711
  Receipt Date: 20110711
  Transmission Date: 20111222
  Serious: Yes (Death, Hospitalization)
  Sender: FDA-Public Use
  Company Number: None

PATIENT
  Sex: Female

DRUGS (5)
  1. FLUOROURACIL [Suspect]
     Dosage: 1750 MG
  2. CISPLATIN [Suspect]
     Dosage: 124 MG
  3. CETUXIMAB (ERBITUX) [Suspect]
     Dosage: 415 MG
  4. FUROSEMIDE [Concomitant]
  5. HYDROMORPHONE HCL [Concomitant]

REACTIONS (11)
  - PAIN [None]
  - BLOOD ELECTROLYTES DECREASED [None]
  - LOSS OF CONSCIOUSNESS [None]
  - NAUSEA [None]
  - DEPRESSED LEVEL OF CONSCIOUSNESS [None]
  - DIZZINESS [None]
  - FALL [None]
  - HYPOKALAEMIA [None]
  - VOMITING [None]
  - HYPOTENSION [None]
  - ASPIRATION [None]
